FAERS Safety Report 19393268 (Version 1)
Quarter: 2021Q2

REPORT INFORMATION
  Report Type: Spontaneous
  Country: ZA (occurrence: ZA)
  Receive Date: 20210609
  Receipt Date: 20210609
  Transmission Date: 20210717
  Serious: No
  Sender: FDA-Public Use
  Company Number: ZA-LUPIN PHARMACEUTICALS INC.-2021-08588

PATIENT
  Sex: Female

DRUGS (5)
  1. AMLOC 5 MG [Suspect]
     Active Substance: AMLODIPINE BESYLATE
     Indication: HYPERTENSION
     Dosage: 5 MILLIGRAM
     Route: 048
     Dates: end: 202104
  2. LANCAP [Concomitant]
     Active Substance: LANSOPRAZOLE
     Indication: ULCER
     Dosage: 30 MILLIGRAM
     Route: 048
  3. FEMIGEL [Concomitant]
     Indication: HORMONE THERAPY
     Dosage: 1.5 MILLIGRAM, PUMP
     Route: 065
  4. NUZAK [Concomitant]
     Active Substance: FLUOXETINE HYDROCHLORIDE
     Indication: DEPRESSION
     Dosage: 20 MILLIGRAM
     Route: 048
  5. SPIRACTIN [Concomitant]
     Indication: DIURETIC THERAPY
     Dosage: 25 MILLIGRAM
     Route: 048

REACTIONS (3)
  - Malaise [Unknown]
  - Erythema [Unknown]
  - Body temperature increased [Unknown]
